FAERS Safety Report 7480177-4 (Version None)
Quarter: 2011Q2

REPORT INFORMATION
  Report Type: 
  Country: None (occurrence: None)
  Receive Date: 20110516
  Receipt Date: 20110505
  Transmission Date: 20111010
  Serious: No
  Sender: FDA-Public Use
  Company Number: US-BIOGENIDEC-2011BI017376

PATIENT
  Age: 30 Year
  Sex: Female

DRUGS (3)
  1. TYSABRI [Suspect]
     Indication: MULTIPLE SCLEROSIS
     Route: 042
     Dates: start: 20101201
  2. BENADRYL [Concomitant]
     Indication: PREMEDICATION
  3. STOMACH MEDICATION (NOS) [Concomitant]
     Indication: PREMEDICATION

REACTIONS (8)
  - HEART RATE INCREASED [None]
  - BLOOD PRESSURE INCREASED [None]
  - HYPERSENSITIVITY [None]
  - HEADACHE [None]
  - NAUSEA [None]
  - MALAISE [None]
  - BODY TEMPERATURE INCREASED [None]
  - STRESS [None]
